FAERS Safety Report 24867633 (Version 1)
Quarter: 2025Q1

REPORT INFORMATION
  Report Type: Spontaneous
  Country: US (occurrence: None)
  Receive Date: 20250120
  Receipt Date: 20250120
  Transmission Date: 20250409
  Serious: No
  Sender: FDA-CTU
  Company Number: None

PATIENT
  Sex: Female

DRUGS (11)
  1. GLATIRAMER [Suspect]
     Active Substance: GLATIRAMER
     Indication: Multiple sclerosis
     Dosage: FREQUENCY : 3 TIMES A WEEK;?
     Route: 058
     Dates: start: 20210121
  2. ABILIFY TAB 15MG [Concomitant]
  3. KESIMPTA [Concomitant]
     Active Substance: OFATUMUMAB
  4. MODAFINIL TAB 100MG [Concomitant]
  5. NURTEC TAB 75MG ODT [Concomitant]
  6. OMNIPOD DASH 5 PACK [Concomitant]
  7. SEROOUEL TAB 100MG [Concomitant]
  8. SPI RONOLACT TAB 25MG [Concomitant]
  9. TOPAMAX TAB 100MG [Concomitant]
  10. TRAZODONE [Concomitant]
     Active Substance: TRAZODONE HYDROCHLORIDE
  11. XEMBIFY INJ 1GM/5ML [Concomitant]

REACTIONS (2)
  - Fall [None]
  - Mobility decreased [None]
